FAERS Safety Report 25349385 (Version 1)
Quarter: 2025Q2

REPORT INFORMATION
  Report Type: Spontaneous
  Country: US (occurrence: AT)
  Receive Date: 20250522
  Receipt Date: 20250522
  Transmission Date: 20250716
  Serious: No
  Sender: MERCK SHARP & DOHME LLC
  Company Number: US-009507513-2281745

PATIENT
  Age: 14 Year
  Sex: Male

DRUGS (2)
  1. TEMODAR [Suspect]
     Active Substance: TEMOZOLOMIDE
     Indication: Brain stem glioma
     Route: 048
  2. RADIATION THERAPY [Concomitant]
     Active Substance: RADIATION THERAPY

REACTIONS (1)
  - Product administered to patient of inappropriate age [Unknown]
